FAERS Safety Report 8138544-1 (Version None)
Quarter: 2012Q1

REPORT INFORMATION
  Report Type: 
  Country: None (occurrence: None)
  Receive Date: 20120215
  Receipt Date: 20120112
  Transmission Date: 20120608
  Serious: Yes (Hospitalization)
  Sender: FDA-Public Use
  Company Number: DZ-ROCHE-1037236

PATIENT
  Sex: Female

DRUGS (4)
  1. AVASTIN [Suspect]
     Indication: BREAST CANCER
     Route: 042
     Dates: start: 20110120, end: 20111117
  2. ZOMETA [Concomitant]
     Indication: BREAST CANCER
     Dates: start: 20110120
  3. CAPECITABINE [Concomitant]
     Indication: BREAST CANCER
  4. TAXOTERE [Concomitant]
     Indication: BREAST CANCER
     Dates: start: 20110120

REACTIONS (4)
  - JAUNDICE [None]
  - HAEMOGLOBIN DECREASED [None]
  - ASTHENIA [None]
  - GENERAL PHYSICAL HEALTH DETERIORATION [None]
